FAERS Safety Report 13328689 (Version 1)
Quarter: 2017Q1

REPORT INFORMATION
  Report Type: Spontaneous
  Country: US (occurrence: US)
  Receive Date: 20170313
  Receipt Date: 20170313
  Transmission Date: 20170428
  Serious: No
  Sender: FDA-Public Use
  Company Number: US-BIOGEN-2017BI00368567

PATIENT
  Sex: Female

DRUGS (2)
  1. TYSABRI [Suspect]
     Active Substance: NATALIZUMAB
     Indication: MULTIPLE SCLEROSIS
     Route: 065
     Dates: start: 20090501, end: 20100609
  2. TYSABRI [Suspect]
     Active Substance: NATALIZUMAB
     Dates: start: 20110404

REACTIONS (1)
  - Visual field defect [Not Recovered/Not Resolved]
